FAERS Safety Report 15860009 (Version 1)
Quarter: 2019Q1

REPORT INFORMATION
  Report Type: Spontaneous
  Country: JP (occurrence: JP)
  Receive Date: 20190123
  Receipt Date: 20190123
  Transmission Date: 20190417
  Serious: Yes (Life-Threatening, Other)
  Sender: FDA-Public Use
  Company Number: JP-CELGENEUS-JPN-20190106590

PATIENT
  Age: 49 Year
  Sex: Male
  Weight: 67 kg

DRUGS (3)
  1. OXYCONTIN [Suspect]
     Active Substance: OXYCODONE HYDROCHLORIDE
     Indication: PRODUCT USED FOR UNKNOWN INDICATION
     Dosage: 400 MILLIGRAM
     Route: 048
     Dates: start: 20150410, end: 20150903
  2. ABRAXANE [Suspect]
     Active Substance: PACLITAXEL
     Indication: NON-SMALL CELL LUNG CANCER METASTATIC
     Dosage: 186.6 MILLIGRAM
     Route: 041
     Dates: start: 20150729, end: 20150805
  3. CARBOPLATIN. [Concomitant]
     Active Substance: CARBOPLATIN
     Indication: NON-SMALL CELL LUNG CANCER METASTATIC
     Dosage: 648 MILLIGRAM
     Route: 041
     Dates: start: 20150729, end: 20150729

REACTIONS (2)
  - Pneumatosis intestinalis [Recovering/Resolving]
  - Ileus paralytic [Unknown]

NARRATIVE: CASE EVENT DATE: 20150817
